FAERS Safety Report 25537824 (Version 2)
Quarter: 2025Q3

REPORT INFORMATION
  Report Type: Report from Study
  Country: US (occurrence: US)
  Receive Date: 20250710
  Receipt Date: 20250801
  Transmission Date: 20251021
  Serious: Yes (Hospitalization, Other)
  Sender: ALEXION PHARMACEUTICALS
  Company Number: US-AstraZeneca-CH-00905267A

PATIENT
  Age: 60 Year
  Sex: Female
  Weight: 53.52 kg

DRUGS (18)
  1. TEZEPELUMAB [Suspect]
     Active Substance: TEZEPELUMAB
  2. TEZEPELUMAB [Suspect]
     Active Substance: TEZEPELUMAB
  3. AIRSUPRA [Suspect]
     Active Substance: ALBUTEROL SULFATE\BUDESONIDE
  4. OMEPRAZOLE [Suspect]
     Active Substance: OMEPRAZOLE
  5. ASPIRIN [Suspect]
     Active Substance: ASPIRIN
  6. EVAMIST [Concomitant]
     Active Substance: ESTRADIOL
     Route: 065
  7. TRELEGY ELLIPTA [Concomitant]
     Active Substance: FLUTICASONE FUROATE\UMECLIDINIUM BROMIDE\VILANTEROL TRIFENATATE
     Route: 065
  8. EPINEPHRINE [Concomitant]
     Active Substance: EPINEPHRINE
     Route: 065
  9. MELOXICAM [Concomitant]
     Active Substance: MELOXICAM
     Dosage: 15 MILLIGRAM, QD
     Route: 065
  10. FLUTICASONE [Concomitant]
     Active Substance: FLUTICASONE
     Dosage: 50 MICROGRAM, QD
     Route: 065
  11. PROGESTERONE [Concomitant]
     Active Substance: PROGESTERONE
     Dosage: 200 MILLIGRAM, QD
     Route: 065
  12. FISH OIL [Concomitant]
     Active Substance: FISH OIL
     Dosage: 1000 MILLIGRAM, QD
     Route: 065
  13. AMLODIPINE BESYLATE [Concomitant]
     Active Substance: AMLODIPINE BESYLATE
     Dosage: 5 MILLIGRAM, QD
     Route: 065
  14. ALBUTEROL SULFATE [Concomitant]
     Active Substance: ALBUTEROL SULFATE
     Route: 065
  15. ALLEGRA ALLERGY [Concomitant]
     Active Substance: FEXOFENADINE HYDROCHLORIDE
     Route: 065
  16. ACETAMINOPHEN [Concomitant]
     Active Substance: ACETAMINOPHEN
  17. LIDOCAINE [Concomitant]
     Active Substance: LIDOCAINE
     Route: 065
  18. CYCLOBENZAPRINE [Concomitant]
     Active Substance: CYCLOBENZAPRINE
     Route: 065

REACTIONS (20)
  - COVID-19 [Unknown]
  - Pneumonia [Recovering/Resolving]
  - Upper-airway cough syndrome [Recovering/Resolving]
  - Dysphonia [Recovering/Resolving]
  - Productive cough [Recovering/Resolving]
  - Seasonal allergy [Recovered/Resolved]
  - Asthma [Recovering/Resolving]
  - Anaemia [Unknown]
  - Arthritis [Unknown]
  - Joint stiffness [Unknown]
  - Swelling [Unknown]
  - Contusion [Unknown]
  - Nasal disorder [Unknown]
  - Dysphonia [Unknown]
  - Arthralgia [Unknown]
  - Spinal fusion surgery [Unknown]
  - Adverse drug reaction [Unknown]
  - Hypergammaglobulinaemia [Unknown]
  - Rhinitis allergic [Unknown]
  - Anaphylactic reaction [Unknown]

NARRATIVE: CASE EVENT DATE: 20250101
